FAERS Safety Report 21696081 (Version 1)
Quarter: 2022Q4

REPORT INFORMATION
  Report Type: Spontaneous
  Country: JP (occurrence: JP)
  Receive Date: 20221207
  Receipt Date: 20221207
  Transmission Date: 20230112
  Serious: No
  Sender: FDA-Public Use
  Company Number: JP-PFIZER INC-202201353604

PATIENT
  Age: 87 Year
  Sex: Female

DRUGS (1)
  1. PAXLOVID [Suspect]
     Active Substance: NIRMATRELVIR\RITONAVIR
     Indication: COVID-19 treatment
     Dosage: NORMAL DOSE WAS ADMINISTERED FROM THE NIGHT OF YESTERDAY 05DEC2022 TO TODAY MORNING OF 06DEC2022
     Route: 048
     Dates: start: 20221205

REACTIONS (1)
  - Product prescribing error [Unknown]

NARRATIVE: CASE EVENT DATE: 20221205
